FAERS Safety Report 8742162 (Version 3)
Quarter: 2013Q1

REPORT INFORMATION
  Report Type: Spontaneous
  Country: BR (occurrence: BR)
  Receive Date: 20120824
  Receipt Date: 20130131
  Transmission Date: 20140127
  Serious: Yes (Other)
  Sender: FDA-Public Use
  Company Number: PHHY2012BR072042

PATIENT
  Sex: Male
  Weight: 88 kg

DRUGS (3)
  1. DIOVAN HCT [Suspect]
     Indication: HYPERTENSION
     Dosage: 1 DF (160/12.5 MG) DAILY
     Route: 048
  2. LOSARTAN [Suspect]
     Indication: BLOOD PRESSURE
     Dosage: 3 DF, DAILY
     Route: 048
  3. RIVOTRIL [Concomitant]
     Indication: SLEEP DISORDER
     Dosage: UNK UKN, UNK

REACTIONS (5)
  - Local swelling [Recovered/Resolved]
  - Headache [Recovered/Resolved]
  - Drug intolerance [Unknown]
  - Swelling [Unknown]
  - Labile blood pressure [Unknown]
